FAERS Safety Report 7052324-X (Version None)
Quarter: 2010Q4

REPORT INFORMATION
  Report Type: 
  Country: None (occurrence: None)
  Receive Date: 20101018
  Receipt Date: 20101018
  Transmission Date: 20110411
  Serious: Yes (Hospitalization)
  Sender: FDA-Public Use
  Company Number: None

PATIENT
  Age: 21 Year
  Sex: Male

DRUGS (1)
  1. DOXYCYCLINE [Suspect]
     Indication: MALARIA PROPHYLAXIS
     Dosage: 100MG DAILY PO
     Route: 048
     Dates: start: 20100330, end: 20100630

REACTIONS (22)
  - ABDOMINAL PAIN UPPER [None]
  - ASTHENIA [None]
  - AUTOIMMUNE HEPATITIS [None]
  - CHILLS [None]
  - COAGULOPATHY [None]
  - DECREASED APPETITE [None]
  - DIZZINESS [None]
  - FATIGUE [None]
  - HEADACHE [None]
  - HEPATIC ISCHAEMIA [None]
  - HEPATITIS [None]
  - HEPATOMEGALY [None]
  - HEPATOTOXICITY [None]
  - INTERNATIONAL NORMALISED RATIO INCREASED [None]
  - JAUNDICE [None]
  - MUSCULOSKELETAL STIFFNESS [None]
  - NAUSEA [None]
  - OCULAR ICTERUS [None]
  - PHOTOPHOBIA [None]
  - PROTHROMBIN TIME PROLONGED [None]
  - PYREXIA [None]
  - TRANSAMINASES INCREASED [None]
